FAERS Safety Report 4512163-8 (Version None)
Quarter: 2004Q4

REPORT INFORMATION
  Report Type: 
  Country: None (occurrence: None)
  Receive Date: 20041129
  Receipt Date: 20041118
  Transmission Date: 20050328
  Serious: Yes (Other)
  Sender: FDA-Public Use
  Company Number: BR-ROCHE-386663

PATIENT
  Age: 19 Year
  Sex: Female
  Weight: 80 kg

DRUGS (1)
  1. XENICAL [Suspect]
     Indication: DRUG USE FOR UNKNOWN INDICATION
     Route: 048
     Dates: start: 20041104, end: 20041111

REACTIONS (2)
  - ABDOMINAL PAIN [None]
  - CONSTIPATION [None]
